FAERS Safety Report 6743661-4 (Version None)
Quarter: 2010Q2

REPORT INFORMATION
  Report Type: 
  Country: None (occurrence: None)
  Receive Date: 20100525
  Receipt Date: 20100517
  Transmission Date: 20101027
  Serious: Yes (Death, Congenital Anomaly)
  Sender: FDA-Public Use
  Company Number: IDA-00364

PATIENT
  Sex: Male

DRUGS (3)
  1. PROPRANOLOL [Suspect]
     Indication: MIGRAINE
     Dosage: 2 DF BID / 1 DF BID, TRANSPLACENTAL FORMULATION / TRANSPLACENTAL FORMULATION
     Route: 064
     Dates: start: 20090818
  2. PROPRANOLOL [Suspect]
     Indication: MIGRAINE
     Dosage: 2 DF BID / 1 DF BID, TRANSPLACENTAL FORMULATION / TRANSPLACENTAL FORMULATION
     Route: 064
     Dates: start: 20090818
  3. ALMOTRIPTAN MALATE [Suspect]
     Indication: MIGRAINE
     Dosage: TRANSPLACENTAL FORMULATION: UNKNOWN
     Route: 064
     Dates: start: 20090818

REACTIONS (7)
  - ABORTION INDUCED [None]
  - ARNOLD-CHIARI MALFORMATION [None]
  - CARDIAC DISORDER [None]
  - CONGENITAL FOOT MALFORMATION [None]
  - LIMB MALFORMATION [None]
  - MATERNAL DRUGS AFFECTING FOETUS [None]
  - SPINA BIFIDA [None]
